FAERS Safety Report 17432645 (Version 4)
Quarter: 2020Q2

REPORT INFORMATION
  Report Type: Report from Study
  Country: DK (occurrence: DK)
  Receive Date: 20200218
  Receipt Date: 20200611
  Transmission Date: 20200713
  Serious: Yes (Hospitalization)
  Sender: FDA-Public Use
  Company Number: DK-SEATTLE GENETICS-2020SGN01081

PATIENT
  Age: 41 Year
  Sex: Female
  Weight: 56 kg

DRUGS (4)
  1. BRENTUXIMAB VEDOTIN [Suspect]
     Active Substance: BRENTUXIMAB VEDOTIN
     Indication: HODGKIN^S DISEASE
     Dosage: 78 MILLIGRAM
     Route: 042
     Dates: start: 20200205
  2. VINBLASTINE [Suspect]
     Active Substance: VINBLASTINE
     Indication: HODGKIN^S DISEASE
     Dosage: 10.50 MILLIGRAM, QD
     Route: 042
     Dates: start: 20200205
  3. DACARBAZINE. [Suspect]
     Active Substance: DACARBAZINE
     Indication: HODGKIN^S DISEASE
     Dosage: 656.30 MILLIGRAM, QD
     Route: 042
     Dates: start: 20200205
  4. ADRIAMYCIN [Suspect]
     Active Substance: DOXORUBICIN HYDROCHLORIDE
     Indication: HODGKIN^S DISEASE
     Dosage: 43.76 MILLIGRAM
     Route: 042
     Dates: start: 20200205

REACTIONS (3)
  - Pyrexia [Recovered/Resolved]
  - Influenza [Recovered/Resolved]
  - Abdominal pain [Not Recovered/Not Resolved]

NARRATIVE: CASE EVENT DATE: 20200205
